FAERS Safety Report 9009478 (Version 4)
Quarter: 2013Q1

REPORT INFORMATION
  Report Type: Spontaneous
  Country: US (occurrence: US)
  Receive Date: 20130110
  Receipt Date: 20130328
  Transmission Date: 20140127
  Serious: Yes (Other)
  Sender: FDA-Public Use
  Company Number: US-PFIZER INC-2013003932

PATIENT
  Age: 63 Year
  Sex: Female
  Weight: 79.37 kg

DRUGS (8)
  1. ZITHROMAX [Suspect]
     Dosage: UNK
  2. CELEBREX [Suspect]
     Indication: BACK DISORDER
     Dosage: 200 MG, AS NEEDED
     Route: 048
  3. VALIUM [Concomitant]
     Dosage: 10 MG, 1X/DAY
  4. DILAUDID [Concomitant]
     Dosage: 8 MG, AS NEEDED
  5. TIZANIDINE [Concomitant]
     Dosage: 4 MG, UNK
  6. CALTRATE [Concomitant]
     Dosage: UNK
  7. DEXILANT [Concomitant]
     Indication: ULCER
     Dosage: UNK
  8. ZYRTEC [Concomitant]
     Dosage: UNK

REACTIONS (8)
  - Aphagia [Not Recovered/Not Resolved]
  - Pharyngitis streptococcal [Not Recovered/Not Resolved]
  - Oropharyngeal pain [Not Recovered/Not Resolved]
  - Sinus disorder [Not Recovered/Not Resolved]
  - Influenza [Unknown]
  - Thinking abnormal [Unknown]
  - Back pain [Not Recovered/Not Resolved]
  - Sensitivity to weather change [Unknown]
